FAERS Safety Report 10330290 (Version 4)
Quarter: 2014Q3

REPORT INFORMATION
  Report Type: Spontaneous
  Country: TR (occurrence: TR)
  Receive Date: 20140722
  Receipt Date: 20140827
  Transmission Date: 20150326
  Serious: Yes (Disabling)
  Sender: FDA-Public Use
  Company Number: TR-MERCK-1407TUR008264

PATIENT
  Age: 64 Year
  Sex: Female
  Weight: 60 kg

DRUGS (3)
  1. NOXAFIL [Suspect]
     Active Substance: POSACONAZOLE
     Indication: ASPERGILLUS INFECTION
  2. NOXAFIL [Suspect]
     Active Substance: POSACONAZOLE
     Indication: ANTIFUNGAL PROPHYLAXIS
     Dosage: 400 MG, BID
     Route: 048
  3. NOXAFIL [Suspect]
     Active Substance: POSACONAZOLE
     Indication: FUNGAL INFECTION
     Dosage: 400 MG, BID
     Route: 048

REACTIONS (7)
  - Fungal infection [Recovered/Resolved]
  - Liquid product physical issue [Unknown]
  - Laboratory test abnormal [Unknown]
  - Adverse event [Recovered/Resolved]
  - Infection [Recovered/Resolved]
  - Drug ineffective [Unknown]
  - Water intoxication [Recovered/Resolved]
